FAERS Safety Report 4485851-X (Version None)
Quarter: 2004Q3

REPORT INFORMATION
  Report Type: 
  Country: None (occurrence: None)
  Receive Date: 20040921
  Receipt Date: 20031003
  Transmission Date: 20050211
  Serious: Yes (Hospitalization)
  Sender: FDA-Public Use
  Company Number: 163-20785-03100122

PATIENT
  Age: 68 Year
  Sex: Female
  Weight: 56.6996 kg

DRUGS (3)
  1. THALOMID [Suspect]
     Indication: BREAST CANCER
     Dosage: 150 MG, Q.H.S., ORAL
     Route: 048
     Dates: start: 20030804, end: 20030807
  2. XELODA [Suspect]
     Indication: BREAST CANCER
     Dosage: 1000 MG, QAM, ORAL
     Route: 048
     Dates: start: 20030728, end: 20030807
  3. XELODA [Suspect]
     Indication: BREAST CANCER
     Dosage: 1000 MG, QAM, ORAL
     Route: 048
     Dates: start: 20030728, end: 20030808

REACTIONS (16)
  - ANAEMIA [None]
  - ASTHENIA [None]
  - CARDIAC MURMUR [None]
  - DIARRHOEA [None]
  - HAEMATOCHEZIA [None]
  - HYPOKALAEMIA [None]
  - LUNG INFILTRATION [None]
  - MUCOSAL INFLAMMATION [None]
  - NAUSEA [None]
  - NEUTROPENIA [None]
  - PYREXIA [None]
  - RHONCHI [None]
  - SKIN TURGOR DECREASED [None]
  - SWELLING FACE [None]
  - THROMBOCYTOPENIA [None]
  - VOMITING [None]
